FAERS Safety Report 7769577-2 (Version None)
Quarter: 2011Q3

REPORT INFORMATION
  Report Type: 
  Country: None (occurrence: None)
  Receive Date: 20110922
  Receipt Date: 20110328
  Transmission Date: 20111222
  Serious: No
  Sender: FDA-Public Use
  Company Number: US-ASTRAZENECA-2011SE17498

PATIENT
  Age: 13654 Day
  Sex: Female

DRUGS (1)
  1. SEROQUEL [Suspect]
     Dosage: 75 MG TO 200 MG
     Route: 048
     Dates: start: 20030111

REACTIONS (2)
  - HEPATITIS C [None]
  - TYPE 1 DIABETES MELLITUS [None]
